FAERS Safety Report 14509131 (Version 5)
Quarter: 2018Q2

REPORT INFORMATION
  Report Type: Spontaneous
  Country: ZA (occurrence: ZA)
  Receive Date: 20180209
  Receipt Date: 20180420
  Transmission Date: 20180711
  Serious: Yes (Hospitalization, Other)
  Sender: FDA-Public Use
  Company Number: ZA-CIPLA LTD.-2018ZA04387

PATIENT

DRUGS (3)
  1. BETACOR [Concomitant]
     Indication: HEART RATE INCREASED
     Dosage: 1 DF, QD
     Route: 048
  2. LEVOFLOXACIN. [Suspect]
     Active Substance: LEVOFLOXACIN
     Indication: EAR INFECTION
     Dosage: 1 DF, QD
     Route: 048
     Dates: start: 201606
  3. MOXIFLOXACIN. [Suspect]
     Active Substance: MOXIFLOXACIN
     Indication: EAR INFECTION
     Dosage: 1 DF, QD
     Route: 048
     Dates: start: 201606

REACTIONS (20)
  - Weight decreased [Not Recovered/Not Resolved]
  - Deafness neurosensory [Not Recovered/Not Resolved]
  - Mitochondrial toxicity [Not Recovered/Not Resolved]
  - Neurodegenerative disorder [Not Recovered/Not Resolved]
  - Burning sensation [Unknown]
  - Anxiety [Not Recovered/Not Resolved]
  - Tendonitis [Recovered/Resolved]
  - Loss of personal independence in daily activities [Not Recovered/Not Resolved]
  - Facial pain [Unknown]
  - Depression [Not Recovered/Not Resolved]
  - Insomnia [Unknown]
  - Diabetes mellitus [Unknown]
  - Cytogenetic abnormality [Not Recovered/Not Resolved]
  - Visual impairment [Not Recovered/Not Resolved]
  - Gait disturbance [Not Recovered/Not Resolved]
  - Cardiac disorder [Unknown]
  - Myalgia [Recovered/Resolved]
  - Dyspnoea [Not Recovered/Not Resolved]
  - Adverse event [Unknown]
  - Multi-organ disorder [Not Recovered/Not Resolved]

NARRATIVE: CASE EVENT DATE: 201607
